FAERS Safety Report 7853596-1 (Version None)
Quarter: 2011Q4

REPORT INFORMATION
  Report Type: 
  Country: None (occurrence: None)
  Receive Date: 20111026
  Receipt Date: 20111019
  Transmission Date: 20120403
  Serious: Yes (Life-Threatening, Hospitalization)
  Sender: FDA-Public Use
  Company Number: JP-JNJFOC-20110811008

PATIENT
  Sex: Female
  Weight: 58 kg

DRUGS (4)
  1. FAMOTIDINE [Concomitant]
     Route: 048
     Dates: start: 20050511, end: 20110821
  2. GOLIMUMAB [Suspect]
     Indication: COLITIS ULCERATIVE
     Route: 058
     Dates: start: 20091214, end: 20110801
  3. MESALAMINE [Concomitant]
     Indication: COLITIS ULCERATIVE
     Route: 048
     Dates: start: 20050511, end: 20110821
  4. GOLIMUMAB [Suspect]
     Route: 058

REACTIONS (1)
  - APLASTIC ANAEMIA [None]
